FAERS Safety Report 6232892-8 (Version None)
Quarter: 2009Q2

REPORT INFORMATION
  Report Type: 
  Country: None (occurrence: None)
  Receive Date: 20090617
  Receipt Date: 20090608
  Transmission Date: 20091009
  Serious: Yes (Other)
  Sender: FDA-Public Use
  Company Number: US-AVENTIS-200915038US

PATIENT
  Age: 60 Year
  Sex: Female

DRUGS (2)
  1. LANTUS [Suspect]
     Dosage: DOSE: 60 UNITS IN THE AM AND 60 UNITS PM
     Route: 058
  2. OPTICLIK (INSULIN INJECTION PEN) [Suspect]
     Dates: start: 20050101

REACTIONS (4)
  - BLOOD GLUCOSE INCREASED [None]
  - CARPAL TUNNEL SYNDROME [None]
  - SPINAL OPERATION [None]
  - UPPER RESPIRATORY TRACT INFECTION [None]
